FAERS Safety Report 24594303 (Version 1)
Quarter: 2024Q4

REPORT INFORMATION
  Report Type: Spontaneous
  Country: US (occurrence: US)
  Receive Date: 20241108
  Receipt Date: 20241108
  Transmission Date: 20250115
  Serious: Yes (Hospitalization, Other)
  Sender: BRISTOL-MYERS SQUIBB COMPANY
  Company Number: US-BRISTOL-MYERS SQUIBB COMPANY-2024-170110

PATIENT
  Age: 85 Year
  Sex: Male

DRUGS (1)
  1. THALOMID [Suspect]
     Active Substance: THALIDOMIDE
     Indication: Lepromatous leprosy
     Dosage: 1 TIME A DAY AT NIGHT
     Route: 048
     Dates: start: 202302

REACTIONS (3)
  - Gastrointestinal haemorrhage [Unknown]
  - Product administration error [Unknown]
  - Dementia [Unknown]
